FAERS Safety Report 8387490-7 (Version None)
Quarter: 2012Q2

REPORT INFORMATION
  Report Type: 
  Country: None (occurrence: None)
  Receive Date: 20120525
  Receipt Date: 20120521
  Transmission Date: 20120825
  Serious: Yes (Other)
  Sender: FDA-Public Use
  Company Number: PHHY2012BR044517

PATIENT
  Sex: Female

DRUGS (1)
  1. DIOVAN HCT [Suspect]
     Dosage: 1 DF (VALS 320 MG, HYDR 12.5 MG), UNK

REACTIONS (7)
  - TONGUE DISORDER [None]
  - DYSARTHRIA [None]
  - HYPOKINESIA [None]
  - MALAISE [None]
  - CEREBROVASCULAR ACCIDENT [None]
  - DIABETES MELLITUS [None]
  - BLOOD PRESSURE INCREASED [None]
